FAERS Safety Report 4716894-6 (Version None)
Quarter: 2005Q3

REPORT INFORMATION
  Report Type: 
  Country: None (occurrence: None)
  Receive Date: 20050714
  Receipt Date: 20050701
  Transmission Date: 20060218
  Serious: Yes (Life-Threatening, Hospitalization)
  Sender: FDA-Public Use
  Company Number: 2005-01299

PATIENT
  Age: 63 Year
  Sex: Female
  Weight: 53 kg

DRUGS (7)
  1. VELCADE [Suspect]
     Indication: MULTIPLE MYELOMA
     Dosage: 1.00 MG/M2, 2/WEEK, INTRAVENOUS
     Route: 042
     Dates: start: 20050606, end: 20050613
  2. DUROGESIC (FENTANYL) [Concomitant]
  3. CYCLONAMINE (ETAMSILATE) [Suspect]
  4. MILURIT (ALLOPURINOL) [Concomitant]
  5. AREDIA [Concomitant]
  6. FUROSEMIDE (FUROSEMIDE) [Concomitant]
  7. RANIGAST (RANITIDINE HYDROCHLORIDE) [Concomitant]

REACTIONS (16)
  - BLOOD CALCIUM INCREASED [None]
  - BLOOD CREATININE INCREASED [None]
  - BLOOD GLUCOSE INCREASED [None]
  - BLOOD MAGNESIUM INCREASED [None]
  - BLOOD PH INCREASED [None]
  - CYSTITIS [None]
  - DISEASE PROGRESSION [None]
  - DIZZINESS [None]
  - HAEMODYNAMIC INSTABILITY [None]
  - HAEMOGLOBIN DECREASED [None]
  - HYPOTENSION [None]
  - PCO2 DECREASED [None]
  - PLATELET COUNT DECREASED [None]
  - TACHYCARDIA [None]
  - TACHYPNOEA [None]
  - UROSEPSIS [None]
